FAERS Safety Report 19059135 (Version 1)
Quarter: 2021Q1

REPORT INFORMATION
  Report Type: Spontaneous
  Country: US (occurrence: US)
  Receive Date: 20210325
  Receipt Date: 20210325
  Transmission Date: 20210420
  Serious: No
  Sender: FDA-Public Use
  Company Number: US-BEH-2021129576

PATIENT
  Sex: Male

DRUGS (2)
  1. CORIFACT [Suspect]
     Active Substance: FACTOR XIII CONCENTRATE (HUMAN)
     Indication: PROPHYLAXIS
  2. CORIFACT [Suspect]
     Active Substance: FACTOR XIII CONCENTRATE (HUMAN)
     Indication: FACTOR XIII DEFICIENCY
     Dosage: 1338 INTERNATIONAL UNIT, QMT (EVERY 28 DAYS)
     Route: 042
     Dates: start: 20181009

REACTIONS (1)
  - Head injury [Unknown]
